FAERS Safety Report 4952628-8 (Version None)
Quarter: 2006Q1

REPORT INFORMATION
  Report Type: 
  Country: None (occurrence: None)
  Receive Date: 20060320
  Receipt Date: 20060306
  Transmission Date: 20060701
  Serious: Yes (Other)
  Sender: FDA-Public Use
  Company Number: US-2006-004881

PATIENT
  Sex: Female

DRUGS (9)
  1. BETASERON [Suspect]
     Indication: MULTIPLE SCLEROSIS
     Dosage: SEE IMAGE
     Route: 058
     Dates: start: 20050101
  2. ULTRAM [Concomitant]
  3. COUMADIN [Concomitant]
  4. NEURONTIN [Concomitant]
  5. EFFEXOR XR [Concomitant]
  6. METHYLPREDNISOLONE [Concomitant]
  7. TYLENOL (CAPLET) [Concomitant]
  8. ADVIL [Concomitant]
  9. KLONOPIN [Concomitant]

REACTIONS (1)
  - MYOCARDIAL INFARCTION [None]
